FAERS Safety Report 4357994-2 (Version None)
Quarter: 2004Q2

REPORT INFORMATION
  Report Type: 
  Country: None (occurrence: None)
  Receive Date: 20040511
  Receipt Date: 20040430
  Transmission Date: 20050107
  Serious: Yes (Hospitalization)
  Sender: FDA-Public Use
  Company Number: A0509409A

PATIENT
  Age: 73 Year
  Sex: Female

DRUGS (7)
  1. CALCIUM CARBONATE TABLET [Suspect]
     Indication: DIVERTICULITIS
     Dosage: ORAL
     Route: 048
  2. LEXAPRO [Suspect]
     Dates: start: 20040401, end: 20040401
  3. POTASSIUM SALT [Concomitant]
  4. OMEPRAZOLE [Concomitant]
  5. ALPRAZOLAM [Concomitant]
  6. METHYLCELLULOSE [Concomitant]
  7. SIMVASTATIN [Concomitant]

REACTIONS (2)
  - ATRIAL FIBRILLATION [None]
  - BLEEDING TIME PROLONGED [None]
